FAERS Safety Report 18387409 (Version 1)
Quarter: 2020Q4

REPORT INFORMATION
  Report Type: Spontaneous
  Country: US (occurrence: US)
  Receive Date: 20201015
  Receipt Date: 20201015
  Transmission Date: 20210114
  Serious: Yes (Death)
  Sender: FDA-Public Use
  Company Number: None

PATIENT
  Sex: Male

DRUGS (6)
  1. VALSART/HCTZ [Concomitant]
  2. ESBRIET [Suspect]
     Active Substance: PIRFENIDONE
     Indication: INTERSTITIAL LUNG DISEASE
     Route: 048
     Dates: start: 20191121, end: 202010
  3. BREO ELLIPTA [Concomitant]
     Active Substance: FLUTICASONE FUROATE\VILANTEROL TRIFENATATE
  4. DILTIAZEM. [Concomitant]
     Active Substance: DILTIAZEM
  5. DEXAMETHASON [Concomitant]
     Active Substance: DEXAMETHASONE
  6. PENTOXIFYLLI ER [Concomitant]

REACTIONS (1)
  - COVID-19 [None]
